FAERS Safety Report 4304495-3 (Version None)
Quarter: 2004Q1

REPORT INFORMATION
  Report Type: 
  Country: None (occurrence: None)
  Receive Date: 20040224
  Receipt Date: 20040217
  Transmission Date: 20041129
  Serious: Yes (Life-Threatening)
  Sender: FDA-Public Use
  Company Number: FR-JNJFOC-20040203507

PATIENT
  Age: 57 Year
  Sex: Female

DRUGS (4)
  1. REMICADE [Suspect]
     Indication: RHEUMATOID ARTHRITIS
     Dosage: INTRAVENOUS
     Route: 042
     Dates: start: 20021210, end: 20030709
  2. LEVOTHYROXINE SODIUM [Concomitant]
  3. NAVAQUINE (ALL OTHER THERAPEUTIC PRODUCTS) [Concomitant]
  4. METHOTREXATE [Concomitant]

REACTIONS (10)
  - ANTIBODY TEST POSITIVE [None]
  - APLASTIC ANAEMIA [None]
  - CUTANEOUS LUPUS ERYTHEMATOSUS [None]
  - DEHYDRATION [None]
  - HYPONATRAEMIA [None]
  - HYPOPROTEINAEMIA [None]
  - INFLAMMATION [None]
  - LYMPHOPENIA [None]
  - SEPSIS [None]
  - SYSTEMIC LUPUS ERYTHEMATOSUS [None]
